FAERS Safety Report 6864669-4 (Version None)
Quarter: 2010Q3

REPORT INFORMATION
  Report Type: 
  Country: None (occurrence: None)
  Receive Date: 20100720
  Receipt Date: 20100706
  Transmission Date: 20110219
  Serious: Yes (Hospitalization)
  Sender: FDA-Public Use
  Company Number: 2010AM001983

PATIENT
  Age: 74 Year
  Sex: Female
  Weight: 75.2971 kg

DRUGS (11)
  1. SYMLIN [Suspect]
     Indication: TYPE 2 DIABETES MELLITUS
     Dosage: 45 MCG;TID;SC, 60 MCG;TID, SC, 15 MCG; SC
     Route: 058
     Dates: start: 20050101, end: 20100504
  2. SYMLIN [Suspect]
     Indication: TYPE 2 DIABETES MELLITUS
     Dosage: 45 MCG;TID;SC, 60 MCG;TID, SC, 15 MCG; SC
     Route: 058
     Dates: start: 20100505
  3. SYMLIN [Suspect]
     Indication: TYPE 2 DIABETES MELLITUS
     Dosage: 45 MCG;TID;SC, 60 MCG;TID, SC, 15 MCG; SC
     Route: 058
     Dates: start: 20100505
  4. HUMALOG [Concomitant]
  5. ZOCOR [Concomitant]
  6. PRINIVIL [Concomitant]
  7. TOPROL-XL [Concomitant]
  8. WELLBUTRIN [Concomitant]
  9. MOBIC [Concomitant]
  10. SYNTHROID [Concomitant]
  11. SANCTURIA XR [Concomitant]

REACTIONS (5)
  - ARTHRALGIA [None]
  - BLOOD GLUCOSE INCREASED [None]
  - CARDIAC FLUTTER [None]
  - DRUG PRESCRIBING ERROR [None]
  - NAUSEA [None]
